FAERS Safety Report 9122567 (Version 2)
Quarter: 2013Q1

REPORT INFORMATION
  Report Type: Spontaneous
  Country: US (occurrence: None)
  Receive Date: 20130222
  Receipt Date: 20130307
  Transmission Date: 20140127
  Serious: Yes (Hospitalization)
  Sender: FDA-Public Use
  Company Number: 2013US-004574

PATIENT
  Age: 48 Year
  Sex: Female
  Weight: 117 kg

DRUGS (23)
  1. OMONTYS (PEGINESATIDE) SOLUTION FOR INJECTION [Suspect]
     Indication: NEPHROGENIC ANAEMIA
     Route: 042
     Dates: start: 20130211, end: 20130211
  2. TOPROL (METOPROLOL SUCCINATE) [Concomitant]
  3. LISINOPRIL (LISINOPRIL) [Concomitant]
  4. LANTUS (INSULIN GLARGINE) [Concomitant]
  5. VITAMIN B COMPLEX (VITAMIN B COMPLEX) [Concomitant]
  6. NEXIUM (ESOMEPRAZOLE MAGNESIUM) [Concomitant]
  7. ALBUTEROL (SALBUTAMOL) [Concomitant]
  8. CLARITIN (GLICLAZIDE) [Concomitant]
  9. RENA-VITE (ASCORBIC ACID, BIOTIN, CALCIUM PANTOTHENATE, CYANOCOBALAMIN, FOLIC ACID, NICOTINAMIDE, PYRIDOXINE HYDROCHLORIDE, RIBOFLAVIN, THIAMINE HYDROCHLORIDE) [Concomitant]
  10. PRAVASTATIN 9PRAVASTATIN) [Concomitant]
  11. PLAVIX (CLOPIDOGREL BISULFATE) [Concomitant]
  12. ASA (ACETYLSALICYLIC ACID) [Concomitant]
  13. RENVELA (SEVELAMER CARBONATE [Concomitant]
  14. VITAMIN D3 (COLECALCIFEROL) [Concomitant]
  15. FOLIC ACID (FOLIC ACID) [Concomitant]
  16. NORVASC (AMLODIPINE BESILATE) [Concomitant]
  17. HUMALOG (INSULIN LISPRO) [Concomitant]
  18. NEPHROCAPS [Concomitant]
  19. ZEMPLAR (PARICALCITOL) [Concomitant]
  20. LIQUACEL [Concomitant]
  21. HEPARIN (HEPARIN) [Concomitant]
  22. FUROSEMIDE (FUROSEMIDE) [Concomitant]
  23. TERAZOSIN (TERAZOSIN) [Concomitant]

REACTIONS (10)
  - Hypersensitivity [None]
  - Hypotension [None]
  - Foaming at mouth [None]
  - Chest pain [None]
  - Opisthotonus [None]
  - Faecal incontinence [None]
  - Diarrhoea [None]
  - Leukocytosis [None]
  - Pain in extremity [None]
  - Faecal incontinence [None]
